FAERS Safety Report 16598686 (Version 6)
Quarter: 2020Q4

REPORT INFORMATION
  Report Type: Spontaneous
  Country: US (occurrence: US)
  Receive Date: 20190719
  Receipt Date: 20201230
  Transmission Date: 20210113
  Serious: No
  Sender: FDA-Public Use
  Company Number: US-SA-2019SA111525

PATIENT

DRUGS (2)
  1. DUPIXENT [Suspect]
     Active Substance: DUPILUMAB
     Indication: DERMATITIS ATOPIC
     Dosage: 300 MG, QOW
     Route: 030
     Dates: start: 20190416
  2. DUPIXENT [Suspect]
     Active Substance: DUPILUMAB
     Dosage: 300 MG, QOW
     Route: 058

REACTIONS (5)
  - Eye allergy [Recovered/Resolved]
  - Incorrect route of product administration [Unknown]
  - Eye inflammation [Recovered/Resolved]
  - Vision blurred [Unknown]
  - Weight increased [Unknown]

NARRATIVE: CASE EVENT DATE: 20190416
